FAERS Safety Report 23951796 (Version 1)
Quarter: 2024Q2

REPORT INFORMATION
  Report Type: Spontaneous
  Country: US (occurrence: None)
  Receive Date: 20240607
  Receipt Date: 20240607
  Transmission Date: 20240715
  Serious: Yes (Hospitalization)
  Sender: FDA-Public Use
  Company Number: None

PATIENT
  Sex: Female

DRUGS (1)
  1. BALVERSA [Suspect]
     Active Substance: ERDAFITINIB
     Indication: Bladder neoplasm
     Dosage: 8MG ONCE DAILY BY MOUTH?
     Route: 048
     Dates: start: 20240228

REACTIONS (3)
  - Dry mouth [None]
  - Feeding disorder [None]
  - Rash [None]
